FAERS Safety Report 25207153 (Version 6)
Quarter: 2025Q4

REPORT INFORMATION
  Report Type: Report from Study
  Country: US (occurrence: US)
  Receive Date: 20250417
  Receipt Date: 20251120
  Transmission Date: 20260117
  Serious: Yes (Other)
  Sender: AUROBINDO
  Company Number: US-AUROBINDO-AUR-APL-2025-020187

PATIENT
  Age: 78 Year
  Sex: Male

DRUGS (2)
  1. BELEODAQ [Suspect]
     Active Substance: BELINOSTAT
     Indication: Product used for unknown indication
     Dosage: UNK
     Route: 065
  2. TAZEMETOSTAT [Suspect]
     Active Substance: TAZEMETOSTAT
     Indication: Product used for unknown indication
     Dosage: UNK
     Route: 065

REACTIONS (16)
  - Atrial fibrillation [Unknown]
  - Pneumonia [Unknown]
  - Fatigue [Unknown]
  - Dysgeusia [Unknown]
  - Diarrhoea [Unknown]
  - Lymphocyte count decreased [Unknown]
  - Alopecia [Unknown]
  - Lacrimation increased [Unknown]
  - Cough [Unknown]
  - Influenza like illness [Unknown]
  - Discomfort [Unknown]
  - Hair texture abnormal [Unknown]
  - Vomiting [Unknown]
  - Skin atrophy [Unknown]
  - Eye disorder [Unknown]
  - Paranasal sinus discomfort [Unknown]

NARRATIVE: CASE EVENT DATE: 20250110
